FAERS Safety Report 16642611 (Version 1)
Quarter: 2019Q3

REPORT INFORMATION
  Report Type: Spontaneous
  Country: US (occurrence: US)
  Receive Date: 20190729
  Receipt Date: 20190729
  Transmission Date: 20191004
  Serious: No
  Sender: FDA-Public Use
  Company Number: US-PFIZER INC-2019318486

PATIENT
  Age: 55 Year
  Sex: Female
  Weight: 90.7 kg

DRUGS (1)
  1. GABAPENTIN. [Suspect]
     Active Substance: GABAPENTIN
     Indication: DIABETIC NEUROPATHY
     Dosage: 4000 MG, DAILY (800 MG; 5 TIMES A DAY)
     Dates: start: 20190719

REACTIONS (5)
  - Prescribed overdose [Unknown]
  - Off label use [Unknown]
  - Insomnia [Unknown]
  - Weight increased [Unknown]
  - Drug ineffective for unapproved indication [Unknown]
